FAERS Safety Report 21310069 (Version 2)
Quarter: 2022Q4

REPORT INFORMATION
  Report Type: Report from Study
  Country: PT (occurrence: PT)
  Receive Date: 20220909
  Receipt Date: 20221005
  Transmission Date: 20230112
  Serious: Yes (Hospitalization, Other)
  Sender: FDA-Public Use
  Company Number: PT-JNJFOC-20220909990

PATIENT
  Age: 52 Year
  Sex: Male
  Weight: 87 kg

DRUGS (2)
  1. SIMPONI [Suspect]
     Active Substance: GOLIMUMAB
     Indication: Spondylitis
     Route: 058
     Dates: start: 20211207
  2. SIMPONI [Suspect]
     Active Substance: GOLIMUMAB
     Route: 058
     Dates: end: 20220822

REACTIONS (4)
  - Hydronephrosis [Unknown]
  - Testicular disorder [Unknown]
  - Lung disorder [Unknown]
  - Uveitis [Unknown]

NARRATIVE: CASE EVENT DATE: 20220822
